FAERS Safety Report 5546413-6 (Version None)
Quarter: 2007Q4

REPORT INFORMATION
  Report Type: 
  Country: None (occurrence: None)
  Receive Date: 20071123
  Receipt Date: 20061227
  Transmission Date: 20080405
  Serious: Yes (Other)
  Sender: FDA-Public Use
  Company Number: US-JNJFOC-20061102355

PATIENT
  Age: 77 Year
  Sex: Female
  Weight: 83.4619 kg

DRUGS (1)
  1. LEVAQUIN [Suspect]
     Indication: SINUSITIS
     Dosage: 500 MG,
     Dates: start: 20060607, end: 20060611

REACTIONS (1)
  - ARTHRALGIA [None]
